FAERS Safety Report 8220221-X (Version None)
Quarter: 2012Q1

REPORT INFORMATION
  Report Type: 
  Country: None (occurrence: None)
  Receive Date: 20120320
  Receipt Date: 20120308
  Transmission Date: 20120608
  Serious: Yes (Hospitalization)
  Sender: FDA-Public Use
  Company Number: US-BAYER-2012-023934

PATIENT
  Age: 45 Year
  Sex: Female
  Weight: 58.05 kg

DRUGS (4)
  1. LIPITOR [Concomitant]
     Indication: HYPERCHOLESTEROLAEMIA
     Dosage: ? TAB DAILY FOR 2 WEEKS
  2. PAXIL [Concomitant]
     Dosage: 10 MG, DAILY
  3. VALTREX [Concomitant]
     Dosage: ? TAB DAILY
  4. YASMIN [Suspect]
     Dosage: UNK

REACTIONS (1)
  - DEEP VEIN THROMBOSIS [None]
